FAERS Safety Report 9519497 (Version 1)
Quarter: 2013Q3

REPORT INFORMATION
  Report Type: Spontaneous
  Country: GB (occurrence: GB)
  Receive Date: 20130912
  Receipt Date: 20130912
  Transmission Date: 20140515
  Serious: Yes (Disabling, Other)
  Sender: FDA-Public Use
  Company Number: GB-PFIZER INC-2013255395

PATIENT
  Age: 62 Year
  Sex: Female
  Weight: 89.4 kg

DRUGS (8)
  1. SULFASALAZINE [Suspect]
     Indication: PSORIATIC ARTHROPATHY
     Dosage: 500 MG, UNK
     Route: 048
     Dates: start: 20130116
  2. SULFASALAZINE [Suspect]
     Dosage: 2 G, UNK
     Dates: end: 20130208
  3. OMEPRAZOLE [Concomitant]
     Dosage: 20 MG, 1X/DAY (IN THE MORNING)
     Route: 048
  4. ATORVASTATIN [Concomitant]
     Dosage: UNK, AT NIGHT
     Route: 048
  5. REGURIN [Concomitant]
     Indication: BLADDER IRRITATION
     Dosage: UNK
  6. METFORMIN [Concomitant]
     Indication: TYPE 2 DIABETES MELLITUS
     Dosage: 1000 MG, 2X/DAY
     Route: 048
     Dates: start: 2002
  7. GLIPIZIDE [Concomitant]
     Dosage: 5 MG, 2X/DAY
     Route: 048
  8. ASPIRIN [Concomitant]
     Dosage: 75 MG, UNK

REACTIONS (11)
  - Rash [Recovering/Resolving]
  - Hypotension [Recovering/Resolving]
  - Pyrexia [Recovering/Resolving]
  - Myalgia [Recovering/Resolving]
  - Aspartate aminotransferase increased [Recovering/Resolving]
  - Alanine aminotransferase increased [Recovering/Resolving]
  - Stomatitis [Recovering/Resolving]
  - Nausea [Recovering/Resolving]
  - White blood cell count decreased [Recovering/Resolving]
  - Blood sodium decreased [Recovering/Resolving]
  - Neutropenic sepsis [Recovering/Resolving]
